FAERS Safety Report 4681830-8 (Version None)
Quarter: 2005Q2

REPORT INFORMATION
  Report Type: 
  Country: None (occurrence: None)
  Receive Date: 20050602
  Receipt Date: 20050525
  Transmission Date: 20051028
  Serious: Yes (Hospitalization)
  Sender: FDA-Public Use
  Company Number: 2005079886

PATIENT
  Age: 72 Year
  Sex: Female

DRUGS (7)
  1. ATENOLOL [Suspect]
     Indication: ILL-DEFINED DISORDER
     Dosage: 100 MG (EVERY DAY), ORAL
     Route: 048
     Dates: end: 20041223
  2. DILTIAZEM HYDROCHLORIDE [Suspect]
     Indication: ILL-DEFINED DISORDER
     Dosage: 360 MG (EVERY DAY), ORAL
     Route: 048
  3. FUROSEMIDE [Suspect]
     Indication: ILL-DEFINED DISORDER
     Dosage: 40 MG (EVERY DAY), ORAL
     Route: 047
  4. ASPIRIN [Suspect]
     Indication: ILL-DEFINED DISORDER
     Dosage: 150 MG (EVERY DAY), ORAL
     Route: 048
     Dates: start: 20040615
  5. CANDESARTAN CILEXETIL (CANDESARTAN CILEXETIL) [Suspect]
     Indication: ILL-DEFINED DISORDER
     Dosage: 8 MG (EVERY DAY), ORAL
     Route: 048
     Dates: start: 20041015, end: 20041223
  6. LEVOTHYROXINE SODIUM [Concomitant]
  7. PANTOPRAZOLE SODIUM [Concomitant]

REACTIONS (4)
  - ATRIOVENTRICULAR BLOCK COMPLETE [None]
  - BLOOD CREATININE INCREASED [None]
  - CONDITION AGGRAVATED [None]
  - HYPERKALAEMIA [None]
